FAERS Safety Report 9641768 (Version 2)
Quarter: 2013Q4

REPORT INFORMATION
  Report Type: Spontaneous
  Country: US (occurrence: US)
  Receive Date: 20131023
  Receipt Date: 20131023
  Transmission Date: 20140711
  Serious: Yes (Hospitalization)
  Sender: FDA-Public Use
  Company Number: US-DENDREON CORPORATION-2013PROUSA03221

PATIENT
  Age: 71 Year
  Sex: Male
  Weight: 95.69 kg

DRUGS (16)
  1. PROVENGE [Suspect]
     Indication: PROSTATE CANCER METASTATIC
     Dosage: 250 ML, SINGLE
     Route: 042
     Dates: start: 20130916, end: 20130916
  2. PROVENGE [Suspect]
     Dosage: 250 ML, SINGLE
     Route: 042
     Dates: start: 20130930, end: 20130930
  3. ALPRAZOLAM [Concomitant]
     Indication: ANXIETY
     Dosage: 0.5MG, TID, PRN
     Route: 048
  4. COMBIVENT [Concomitant]
     Dosage: 2 DF, UNK
  5. ETODOLAC [Concomitant]
     Dosage: 400 MG, TID
     Route: 048
  6. GABAPENTIN [Concomitant]
     Dosage: 800 MG, QD
     Route: 048
  7. HYDROCODONE/ACETAMINOPHEN [Concomitant]
     Indication: PAIN
     Dosage: 5/325, Q 4 HOURS PRN
     Route: 048
  8. JUICE PLUS [Concomitant]
     Dosage: 1 TABLETS, QD
     Route: 048
  9. NASONEX [Concomitant]
     Dosage: 1 DF, QD
  10. ONDANSETRON [Concomitant]
     Dosage: 8 MG, TID, PRN
     Route: 060
  11. SIMVASTATIN [Concomitant]
     Dosage: 40 MG, QD
     Route: 048
  12. SLOW RELEASE IRON [Concomitant]
     Dosage: 1 TABLETS, QD
     Route: 048
  13. DOCUSATE SODIUM [Concomitant]
  14. SULFAMETHOXAZOLE W/TRIMETHOPRIM [Concomitant]
     Dosage: 1 TABLETS, BID
     Route: 048
  15. VITAMIN B1 [Concomitant]
     Dosage: 100 MG, QD
     Route: 048
  16. PROMETHAZINE [Suspect]
     Indication: NAUSEA

REACTIONS (1)
  - Vascular complication associated with device [Unknown]
